FAERS Safety Report 5713672-6 (Version None)
Quarter: 2008Q2

REPORT INFORMATION
  Report Type: 
  Country: None (occurrence: None)
  Receive Date: 20080422
  Receipt Date: 20080417
  Transmission Date: 20081010
  Serious: Yes (Other)
  Sender: FDA-Public Use
  Company Number: AU-ABBOTT-07P-008-0426370-00

PATIENT
  Sex: Female
  Weight: 65 kg

DRUGS (1)
  1. HUMIRA [Suspect]
     Indication: CROHN'S DISEASE
     Dosage: 160/80/40 TOTAL DAILY DOSE
     Route: 058
     Dates: start: 20070913, end: 20071122

REACTIONS (5)
  - ABDOMINAL DISTENSION [None]
  - COLITIS ULCERATIVE [None]
  - GASTROENTERITIS NOROVIRUS [None]
  - HAEMORRHAGE [None]
  - PROCTITIS [None]
